FAERS Safety Report 11948892 (Version 1)
Quarter: 2016Q1

REPORT INFORMATION
  Report Type: Report from Study
  Country: PR (occurrence: PR)
  Receive Date: 20160125
  Receipt Date: 20160125
  Transmission Date: 20160526
  Serious: Yes (Other)
  Sender: FDA-Public Use
  Company Number: PR-ABBVIE-15K-131-1490370-00

PATIENT
  Age: 49 Year
  Sex: Female
  Weight: 81.72 kg

DRUGS (6)
  1. HUMIRA [Suspect]
     Active Substance: ADALIMUMAB
     Indication: RHEUMATOID ARTHRITIS
     Route: 058
     Dates: start: 201311, end: 201509
  2. SYMBICORT [Concomitant]
     Active Substance: BUDESONIDE\FORMOTEROL FUMARATE DIHYDRATE
     Indication: CHRONIC OBSTRUCTIVE PULMONARY DISEASE
     Route: 055
  3. OXIGEN [Concomitant]
     Indication: CHRONIC OBSTRUCTIVE PULMONARY DISEASE
  4. MEDROL [Concomitant]
     Active Substance: METHYLPREDNISOLONE
     Indication: FIBROMYALGIA
  5. SYNTHROID [Concomitant]
     Active Substance: LEVOTHYROXINE SODIUM
     Indication: THYROID DISORDER
  6. SOMINEX [Concomitant]
     Active Substance: DIPHENHYDRAMINE HYDROCHLORIDE
     Indication: CHRONIC OBSTRUCTIVE PULMONARY DISEASE

REACTIONS (2)
  - Urinary tract infection [Recovered/Resolved]
  - Pneumonia [Recovered/Resolved]

NARRATIVE: CASE EVENT DATE: 201508
